FAERS Safety Report 15661306 (Version 5)
Quarter: 2019Q1

REPORT INFORMATION
  Report Type: Report from Study
  Country: US (occurrence: US)
  Receive Date: 20181127
  Receipt Date: 20190205
  Transmission Date: 20190417
  Serious: Yes (Other)
  Sender: FDA-Public Use
  Company Number: PHEH2018US048686

PATIENT
  Sex: Female

DRUGS (1)
  1. OMNITROPE [Suspect]
     Active Substance: SOMATROPIN
     Indication: GROWTH HORMONE DEFICIENCY
     Dosage: 0.2 MG, QD
     Route: 058
     Dates: start: 201811, end: 201812

REACTIONS (14)
  - Pain [Unknown]
  - Neck pain [Unknown]
  - Hypothalamo-pituitary disorder [Unknown]
  - Hypothyroidism [Unknown]
  - Diabetes mellitus [Unknown]
  - Insomnia [Unknown]
  - Blindness [Unknown]
  - Ill-defined disorder [Unknown]
  - Back pain [Unknown]
  - Malaise [Unknown]
  - General physical health deterioration [Unknown]
  - Fatigue [Unknown]
  - Arthritis [Unknown]
  - Hypoacusis [Unknown]
